FAERS Safety Report 19354344 (Version 1)
Quarter: 2021Q2

REPORT INFORMATION
  Report Type: Spontaneous
  Country: FR (occurrence: FR)
  Receive Date: 20210531
  Receipt Date: 20210531
  Transmission Date: 20210717
  Serious: Yes (Other)
  Sender: FDA-Public Use
  Company Number: FR-SA-2021SA177364

PATIENT
  Age: 84 Year
  Sex: Male
  Weight: 71 kg

DRUGS (7)
  1. METFORMIN [Concomitant]
     Active Substance: METFORMIN HYDROCHLORIDE
     Dosage: UNK
  2. LOVENOX [Suspect]
     Active Substance: ENOXAPARIN SODIUM
     Indication: THROMBOSIS PROPHYLAXIS
     Dosage: 0.4 ML, QD
     Route: 058
     Dates: start: 20210305, end: 20210318
  3. PRAVASTATIN SODIUM. [Concomitant]
     Active Substance: PRAVASTATIN SODIUM
  4. KARDEGIC [Concomitant]
     Active Substance: ASPIRIN DL-LYSINE
  5. BIPRETERAX [INDAPAMIDE;PERINDOPRIL ARGININE] [Concomitant]
     Active Substance: INDAPAMIDE\PERINDOPRIL ARGININE
  6. VICTOZA [Concomitant]
     Active Substance: LIRAGLUTIDE
  7. DIFFU K [Concomitant]
     Active Substance: POTASSIUM CHLORIDE

REACTIONS (2)
  - Injection site erythema [Recovered/Resolved]
  - Rash papular [Recovered/Resolved]

NARRATIVE: CASE EVENT DATE: 20210318
